FAERS Safety Report 4709271-5 (Version None)
Quarter: 2005Q3

REPORT INFORMATION
  Report Type: 
  Country: None (occurrence: None)
  Receive Date: 20050708
  Receipt Date: 20050302
  Transmission Date: 20060218
  Serious: Yes (Hospitalization)
  Sender: FDA-Public Use
  Company Number: 2005UW03398

PATIENT
  Age: 47 Year
  Sex: Female
  Weight: 74.4 kg

DRUGS (3)
  1. SEROQUEL [Suspect]
     Indication: STRESS
     Route: 048
     Dates: start: 20000101, end: 20041201
  2. SEROQUEL [Suspect]
     Route: 048
  3. INHALER [Concomitant]

REACTIONS (7)
  - CARPAL TUNNEL SYNDROME [None]
  - DYSKINESIA [None]
  - HYPOAESTHESIA [None]
  - LUNG NEOPLASM [None]
  - PSORIASIS [None]
  - SCHIZOPHRENIA [None]
  - TREMOR [None]
